FAERS Safety Report 9589519 (Version 2)
Quarter: 2013Q4

REPORT INFORMATION
  Report Type: Spontaneous
  Country: US (occurrence: US)
  Receive Date: 20131003
  Receipt Date: 20131003
  Transmission Date: 20140711
  Serious: No
  Sender: FDA-Public Use
  Company Number: US-AMGEN-USASP2012069512

PATIENT
  Age: 71 Year
  Sex: Female

DRUGS (2)
  1. ENBREL [Suspect]
     Indication: PSORIATIC ARTHROPATHY
     Dosage: 50 MG, QWK
     Route: 058
     Dates: start: 20121018
  2. BACTRIM [Concomitant]
     Indication: PROPHYLAXIS URINARY TRACT INFECTION
     Dosage: UNK

REACTIONS (3)
  - Injection site erythema [Unknown]
  - Injection site induration [Unknown]
  - Injection site reaction [Unknown]
